FAERS Safety Report 10768671 (Version 1)
Quarter: 2015Q1

REPORT INFORMATION
  Report Type: Spontaneous
  Country: US (occurrence: None)
  Receive Date: 20150204
  Receipt Date: 20150204
  Transmission Date: 20150721
  Serious: Yes (Other)
  Sender: FDA-Public Use
  Company Number: 001860755A

PATIENT
  Age: 18 Year
  Sex: Male

DRUGS (7)
  1. PROACTIVPLUS SKIN SMOOTHING EXFOLIATOR [Suspect]
     Active Substance: BENZOYL PEROXIDE
     Indication: ACNE
     Dosage: TWICE DAILY DERMAL
     Dates: start: 20141001, end: 20141015
  2. PROACTIV PLUS EMERGENCY BLEMISH RELIEF [Suspect]
     Active Substance: BENZOYL PEROXIDE
     Indication: ACNE
     Dosage: TWICE DAILY DERMAL
     Dates: start: 20141001, end: 20141015
  3. PROACTIV PLUS PORE TARGETING TREATMENT [Suspect]
     Active Substance: BENZOYL PEROXIDE
     Indication: ACNE
     Dosage: TWICE DAILY DERMAL
     Dates: start: 20141001, end: 20141015
  4. PROACTIV SKIN LIGHTENING [Suspect]
     Active Substance: HYDROQUINONE
     Indication: ACNE
     Dosage: TWICE DAILY DERMAL
     Dates: start: 20141001, end: 20141015
  5. PROACTIV PLUS COMPLEXION PERFECTING HYDRATOR [Suspect]
     Active Substance: SALICYLIC ACID
     Indication: ACNE
     Dosage: TWICE DAILY DERMAL
     Dates: start: 20141001, end: 20141015
  6. PROACTIV DEEP CLEANSING WASH [Suspect]
     Active Substance: SALICYLIC ACID
     Indication: ACNE
     Dosage: TWICE DAILY DERMAL
     Dates: start: 20141001, end: 20141015
  7. PROACTIV PLUS CLEANSING BODY BAR [Suspect]
     Active Substance: SALICYLIC ACID
     Indication: ACNE
     Dosage: TWICE DAILY DERMAL
     Dates: start: 20141001, end: 20141015

REACTIONS (9)
  - Swelling face [None]
  - VIIth nerve paralysis [None]
  - Facial nerve disorder [None]
  - Asthma [None]
  - Depression [None]
  - Vision blurred [None]
  - Rash [None]
  - Back pain [None]
  - Acne [None]

NARRATIVE: CASE EVENT DATE: 20141015
